FAERS Safety Report 16403137 (Version 1)
Quarter: 2019Q2

REPORT INFORMATION
  Report Type: Spontaneous
  Country: US (occurrence: US)
  Receive Date: 20190501
  Receipt Date: 20190501
  Transmission Date: 20190711
  Serious: Yes (Other)
  Sender: FDA-Public Use
  Company Number: None

PATIENT
  Age: 68 Year
  Sex: Female
  Weight: 70.31 kg

DRUGS (26)
  1. MONTELUKAST [Concomitant]
     Active Substance: MONTELUKAST SODIUM
  2. CLONAZEPAM. [Concomitant]
     Active Substance: CLONAZEPAM
  3. TOPIRAMATE 50MG [Suspect]
     Active Substance: TOPIRAMATE
     Indication: STRESS
     Dosage: ?          QUANTITY:1 DF DOSAGE FORM;?
     Route: 048
     Dates: start: 20190227, end: 20190329
  4. DILTIAZEM. [Concomitant]
     Active Substance: DILTIAZEM
  5. LIOTHYRONINE [Concomitant]
     Active Substance: LIOTHYRONINE
  6. HYOSCYAMINE. [Concomitant]
     Active Substance: HYOSCYAMINE
  7. LOSARTAN. [Concomitant]
     Active Substance: LOSARTAN
  8. MELATONIN [Concomitant]
     Active Substance: MELATONIN
  9. FERROUS SULFATE. [Concomitant]
     Active Substance: FERROUS SULFATE
  10. PROBIOTIC [Concomitant]
     Active Substance: PROBIOTICS NOS
  11. OMEPRAZOLE. [Concomitant]
     Active Substance: OMEPRAZOLE
  12. ASPIRIN. [Concomitant]
     Active Substance: ASPIRIN
  13. FISH OIL [Concomitant]
     Active Substance: FISH OIL
  14. TOPIRAMATE 50MG [Suspect]
     Active Substance: TOPIRAMATE
     Indication: DEPRESSION
     Dosage: ?          QUANTITY:1 DF DOSAGE FORM;?
     Route: 048
     Dates: start: 20190227, end: 20190329
  15. ISOSORBIDE. [Concomitant]
     Active Substance: ISOSORBIDE
  16. APPLE CIDER VINEGAR [Concomitant]
     Active Substance: APPLE CIDER VINEGAR
  17. VITAMIN D [Concomitant]
     Active Substance: VITAMIN D NOS
  18. FLAXSEED [Concomitant]
     Active Substance: FLAX SEED
  19. BUPROPION. [Concomitant]
     Active Substance: BUPROPION
  20. FOLIC ACID. [Concomitant]
     Active Substance: FOLIC ACID
  21. CALCIUM [Concomitant]
     Active Substance: CALCIUM
  22. CANNABIS [Concomitant]
     Active Substance: CANNABIS SATIVA SUBSP. INDICA TOP
  23. TOPIRAMATE 50MG [Suspect]
     Active Substance: TOPIRAMATE
     Indication: ANXIETY
     Dosage: ?          QUANTITY:1 DF DOSAGE FORM;?
     Route: 048
     Dates: start: 20190227, end: 20190329
  24. CPAP MACHINE [Concomitant]
  25. SIMVASTATIN. [Concomitant]
     Active Substance: SIMVASTATIN
  26. NITROSTAT [Concomitant]
     Active Substance: NITROGLYCERIN

REACTIONS (3)
  - Cough [None]
  - Dyspnoea [None]
  - Heart rate increased [None]

NARRATIVE: CASE EVENT DATE: 20190325
